FAERS Safety Report 17670588 (Version 1)
Quarter: 2020Q2

REPORT INFORMATION
  Report Type: Spontaneous
  Country: US (occurrence: US)
  Receive Date: 20200415
  Receipt Date: 20200415
  Transmission Date: 20200713
  Serious: No
  Sender: FDA-Public Use
  Company Number: US-PFIZER INC-2019345927

PATIENT
  Age: 67 Year
  Sex: Male
  Weight: 83.46 kg

DRUGS (10)
  1. TRESIBA [Concomitant]
     Active Substance: INSULIN DEGLUDEC
     Indication: DIABETES MELLITUS
     Dosage: 35 IU, DAILY
     Route: 058
     Dates: start: 2017
  2. HEPSERA [Concomitant]
     Active Substance: ADEFOVIR DIPIVOXIL
     Indication: LIVER TRANSPLANT
     Dosage: 10 MG, 1X/DAY
     Route: 048
  3. CAVERJECT [Suspect]
     Active Substance: ALPROSTADIL
     Indication: ERECTILE DYSFUNCTION
     Dosage: 2.5 UG, UNK
     Route: 017
     Dates: start: 20200316, end: 20200316
  4. BUSPAR [Concomitant]
     Active Substance: BUSPIRONE HYDROCHLORIDE
     Indication: OBSESSIVE-COMPULSIVE DISORDER
  5. ZOLOFT [Concomitant]
     Active Substance: SERTRALINE HYDROCHLORIDE
     Indication: DEPRESSION
     Dosage: 150 MG, 1X/DAY
     Route: 048
  6. BUSPAR [Concomitant]
     Active Substance: BUSPIRONE HYDROCHLORIDE
     Indication: DEPRESSION
     Dosage: 10 MG, 3X/DAY (10MG THREE TIMES DAILY BY MOUTH)
     Route: 048
  7. EPIVIR HBV [Concomitant]
     Active Substance: LAMIVUDINE
     Indication: LIVER TRANSPLANT
     Dosage: 100 MG, 2X/DAY (100MG TWICE DAILY BY MOUTH)
     Route: 048
  8. LIPITOR [Concomitant]
     Active Substance: ATORVASTATIN CALCIUM
     Indication: BLOOD CHOLESTEROL ABNORMAL
     Dosage: 10 MG, DAILY
     Route: 048
  9. NOVOLOG [Concomitant]
     Active Substance: INSULIN ASPART
     Indication: DIABETES MELLITUS
     Dosage: 15 IU, 1X/DAY (BY INJECTION)
     Dates: start: 2017
  10. VICTOZA [Concomitant]
     Active Substance: LIRAGLUTIDE
     Indication: DIABETES MELLITUS
     Dosage: 1.2 MG, DAILY
     Route: 058
     Dates: start: 2018

REACTIONS (1)
  - Blood pressure decreased [Recovered/Resolved]

NARRATIVE: CASE EVENT DATE: 20200316
